FAERS Safety Report 9870918 (Version 1)
Quarter: 2014Q1

REPORT INFORMATION
  Report Type: Spontaneous
  Country: GB (occurrence: None)
  Receive Date: 20140203
  Receipt Date: 20140203
  Transmission Date: 20141002
  Serious: Yes (Other)
  Sender: FDA-Public Use
  Company Number: 2014DEPGB00588

PATIENT
  Age: 36 Year
  Sex: Male

DRUGS (9)
  1. DEPOCYT [Suspect]
     Indication: B-CELL LYMPHOMA
  2. CISPLATIN (CISPLATIN) [Suspect]
     Indication: B-CELL LYMPHOMA
  3. CYCLOPHOSPHAMIDE (CYCLOPHOSPHAMIDE) [Suspect]
     Indication: B-CELL LYMPHOMA
     Dates: start: 20120716
  4. DEXAMETHASONE [Suspect]
     Indication: B-CELL LYMPHOMA
  5. DOXORUBICIN [Suspect]
     Indication: B-CELL LYMPHOMA
     Dates: start: 20120716
  6. PREDNISOLONE (PREDNISOLONE) [Suspect]
     Indication: B-CELL LYMPHOMA
     Dates: start: 20120716
  7. RITUXIMAB (RITUXIMAB) [Suspect]
     Indication: B-CELL LYMPHOMA
     Dates: start: 20120716
  8. VINCRISTINE (VINCRISTINE SULFATE) [Suspect]
     Indication: B-CELL LYMPHOMA
     Dates: start: 20120716
  9. ZAPONEX (CLOZAPINE) [Suspect]
     Route: 048
     Dates: start: 20100720, end: 20100720

REACTIONS (6)
  - B-cell lymphoma [None]
  - Off label use [None]
  - White blood cell count decreased [None]
  - Platelet count decreased [None]
  - Leukopenia [None]
  - Thrombocytopenia [None]
